FAERS Safety Report 7576630-5 (Version None)
Quarter: 2011Q2

REPORT INFORMATION
  Report Type: 
  Country: None (occurrence: None)
  Receive Date: 20110628
  Receipt Date: 20110620
  Transmission Date: 20111010
  Serious: Yes (Death, Hospitalization)
  Sender: FDA-Public Use
  Company Number: US-ELI_LILLY_AND_COMPANY-US201105001962

PATIENT
  Sex: Female

DRUGS (4)
  1. HUMALOG [Suspect]
     Indication: TYPE 1 DIABETES MELLITUS
     Dosage: UNK UNK, PRN
     Dates: start: 20010101, end: 20100730
  2. CYMBALTA [Suspect]
     Dosage: UNK
  3. HUMALOG [Suspect]
     Dosage: UNK UNK, BID
     Dates: start: 20010101, end: 20100730
  4. LANTUS [Concomitant]
     Dosage: UNK
     Dates: end: 20100730

REACTIONS (2)
  - CARDIAC FAILURE CONGESTIVE [None]
  - CORONARY ARTERY OCCLUSION [None]
